FAERS Safety Report 7581445-8 (Version None)
Quarter: 2011Q2

REPORT INFORMATION
  Report Type: 
  Country: None (occurrence: None)
  Receive Date: 20110629
  Receipt Date: 20110617
  Transmission Date: 20111010
  Serious: Yes (Hospitalization)
  Sender: FDA-Public Use
  Company Number: PHHY2011US54410

PATIENT

DRUGS (2)
  1. VOLTRAN [Concomitant]
     Indication: PAIN
     Dosage: UNK UKN, UNK
  2. EXTAVIA [Suspect]
     Indication: MULTIPLE SCLEROSIS
     Dosage: 0.125 MG, UNK
     Dates: start: 20110531

REACTIONS (4)
  - MULTIPLE SCLEROSIS RELAPSE [None]
  - MALAISE [None]
  - THROMBOSIS [None]
  - DRUG DOSE OMISSION [None]
